FAERS Safety Report 18841350 (Version 3)
Quarter: 2021Q2

REPORT INFORMATION
  Report Type: Report from Study
  Country: None (occurrence: US)
  Receive Date: 20210204
  Receipt Date: 20210527
  Transmission Date: 20210717
  Serious: Yes (Hospitalization, Other)
  Sender: FDA-Public Use
  Company Number: US-ABBVIE-20K-163-3672002-00

PATIENT
  Age: 91 Year
  Sex: Female

DRUGS (3)
  1. HUMIRA [Suspect]
     Active Substance: ADALIMUMAB
     Indication: RHEUMATOID ARTHRITIS
  2. HUMIRA [Suspect]
     Active Substance: ADALIMUMAB
     Indication: PSORIATIC ARTHROPATHY
     Route: 058
     Dates: start: 2016
  3. COVID?19 VACCINE NOS. [Concomitant]
     Active Substance: COVID-19 VACCINE NOS
     Indication: COVID-19 IMMUNISATION
     Dosage: PFIZER
     Route: 030

REACTIONS (10)
  - Joint swelling [Unknown]
  - Musculoskeletal stiffness [Unknown]
  - Ankle fracture [Unknown]
  - Peripheral swelling [Unknown]
  - Blindness unilateral [Unknown]
  - Spinal column injury [Recovering/Resolving]
  - Pain [Not Recovered/Not Resolved]
  - Fall [Recovering/Resolving]
  - Foot fracture [Unknown]
  - Device issue [Recovered/Resolved]

NARRATIVE: CASE EVENT DATE: 202012
